FAERS Safety Report 16637650 (Version 1)
Quarter: 2019Q3

REPORT INFORMATION
  Report Type: Spontaneous
  Country: US (occurrence: US)
  Receive Date: 20190614
  Receipt Date: 20190614
  Transmission Date: 20191004
  Serious: Yes (Life-Threatening, Hospitalization, Other)
  Sender: FDA-Public Use
  Company Number: None

PATIENT
  Age: 42 Year
  Sex: Male

DRUGS (1)
  1. SUBLOCADE [Suspect]
     Active Substance: BUPRENORPHINE
     Indication: DRUG DEPENDENCE
     Dates: start: 20190522

REACTIONS (7)
  - Vomiting [None]
  - Procedural complication [None]
  - Headache [None]
  - Pneumonia aspiration [None]
  - Nausea [None]
  - Somnolence [None]
  - Seizure [None]

NARRATIVE: CASE EVENT DATE: 20190522
